FAERS Safety Report 13480684 (Version 2)
Quarter: 2017Q3

REPORT INFORMATION
  Report Type: Report from Study
  Country: US (occurrence: US)
  Receive Date: 20170424
  Receipt Date: 20170728
  Transmission Date: 20171127
  Serious: No
  Sender: FDA-Public Use
  Company Number: US-AMGEN-USASL2017034578

PATIENT
  Age: 64 Year
  Sex: Female
  Weight: 87.5 kg

DRUGS (1)
  1. REPATHA [Suspect]
     Active Substance: EVOLOCUMAB
     Indication: HYPERLIPIDAEMIA
     Dosage: 140 MG, Q2WK
     Route: 058
     Dates: start: 20160722

REACTIONS (3)
  - Injection site pain [Recovered/Resolved]
  - Skin disorder [Unknown]
  - Dehydration [Unknown]
